FAERS Safety Report 4342327-8 (Version None)
Quarter: 2004Q2

REPORT INFORMATION
  Report Type: 
  Country: None (occurrence: None)
  Receive Date: 20040420
  Receipt Date: 20040420
  Transmission Date: 20050107
  Serious: No
  Sender: FDA-Public Use
  Company Number: None

PATIENT
  Age: 20 Month
  Sex: Female
  Weight: 11.7935 kg

DRUGS (3)
  1. GENTAMICIN [Suspect]
     Indication: RESPIRATORY FAILURE
     Dosage: 25 MG IV Q 8 H
     Route: 042
     Dates: start: 20040101, end: 20040115
  2. CEFEPIME 500 MG IV Q 8 H [Suspect]
     Indication: RESPIRATORY FAILURE
     Dosage: 500 MG IV Q 8 H
     Route: 042
     Dates: start: 20040104, end: 20040115
  3. VANCOMYCIN [Concomitant]

REACTIONS (2)
  - DRUG TOXICITY [None]
  - RENAL TUBULAR NECROSIS [None]
